FAERS Safety Report 7131994-1 (Version None)
Quarter: 2010Q4

REPORT INFORMATION
  Report Type: 
  Country: None (occurrence: None)
  Receive Date: 20101124
  Receipt Date: 20101124
  Transmission Date: 20110411
  Serious: Yes (Other)
  Sender: FDA-Public Use
  Company Number: None

PATIENT
  Sex: Female
  Weight: 65.7716 kg

DRUGS (2)
  1. ARICEPT [Suspect]
     Indication: AMNESIA
     Dosage: 5 MG 15 DAYS AT PM
     Dates: start: 20100601
  2. ARICEPT [Suspect]
     Indication: CEREBRAL HAEMORRHAGE
     Dosage: 10 MG AUG THRU OCT 2010
     Dates: start: 20100701, end: 20101001

REACTIONS (3)
  - ASTHENIA [None]
  - HEADACHE [None]
  - MUSCLE SPASMS [None]
